FAERS Safety Report 19040966 (Version 2)
Quarter: 2021Q1

REPORT INFORMATION
  Report Type: Spontaneous
  Country: US (occurrence: US)
  Receive Date: 20210323
  Receipt Date: 20210324
  Transmission Date: 20210420
  Serious: Yes (Other)
  Sender: FDA-Public Use
  Company Number: US-SUN PHARMACEUTICAL INDUSTRIES LTD-2021R1-286860

PATIENT
  Age: 40 Year
  Sex: Male

DRUGS (1)
  1. OMEPRAZOLE. [Suspect]
     Active Substance: OMEPRAZOLE
     Indication: PRODUCT USED FOR UNKNOWN INDICATION
     Dosage: ONE CAPSULE AT TIME
     Route: 048

REACTIONS (7)
  - Choking [Unknown]
  - Cough [Unknown]
  - Joint injury [Unknown]
  - Product physical issue [Unknown]
  - Pain in extremity [Unknown]
  - Fall [Unknown]
  - Palpitations [Unknown]
